FAERS Safety Report 10798560 (Version 2)
Quarter: 2015Q1

REPORT INFORMATION
  Report Type: Report from Study
  Country: US (occurrence: US)
  Receive Date: 20150216
  Receipt Date: 20150223
  Transmission Date: 20150721
  Serious: Yes (Hospitalization, Other)
  Sender: FDA-Public Use
  Company Number: US-BAYER-2015-020065

PATIENT
  Age: 70 Year
  Sex: Female

DRUGS (8)
  1. NEXAVAR [Suspect]
     Active Substance: SORAFENIB
     Indication: HEPATIC CANCER
     Dosage: 400 MG, BID
     Route: 048
     Dates: start: 20150204, end: 20150212
  2. COREG [Concomitant]
     Active Substance: CARVEDILOL
  3. LOSARTAN [Concomitant]
     Active Substance: LOSARTAN
  4. METHIMAZOLE. [Concomitant]
     Active Substance: METHIMAZOLE
  5. NORCO [Concomitant]
     Active Substance: ACETAMINOPHEN\HYDROCODONE BITARTRATE
  6. PEG [Concomitant]
     Active Substance: PEGINTERFERON ALFA-2B
  7. ASPIRIN. [Concomitant]
     Active Substance: ASPIRIN
  8. CITALOPRAM [Interacting]
     Active Substance: CITALOPRAM HYDROBROMIDE

REACTIONS (13)
  - Constipation [None]
  - Drug interaction [None]
  - Blood pressure increased [None]
  - Decreased appetite [None]
  - Extrasystoles [None]
  - Constipation [None]
  - Vomiting [None]
  - Pain [None]
  - Diverticulitis [None]
  - Nausea [None]
  - Diarrhoea [None]
  - Abnormal faeces [None]
  - Headache [None]

NARRATIVE: CASE EVENT DATE: 20150206
